FAERS Safety Report 14281713 (Version 4)
Quarter: 2018Q3

REPORT INFORMATION
  Report Type: Spontaneous
  Country: BE (occurrence: BE)
  Receive Date: 20171213
  Receipt Date: 20180711
  Transmission Date: 20181010
  Serious: No
  Sender: FDA-Public Use
  Company Number: BE-009507513-1711BEL007005

PATIENT
  Age: 27 Year
  Sex: Female

DRUGS (1)
  1. POSACONAZOLE [Suspect]
     Active Substance: POSACONAZOLE
     Dosage: UNK
     Route: 048

REACTIONS (1)
  - Toxicity to various agents [Unknown]
